FAERS Safety Report 9729996 (Version 3)
Quarter: 2014Q1

REPORT INFORMATION
  Report Type: Spontaneous
  Country: US (occurrence: US)
  Receive Date: 20131204
  Receipt Date: 20140314
  Transmission Date: 20141002
  Serious: Yes (Other)
  Sender: FDA-Public Use
  Company Number: US-JHP PHARMACEUTICALS, LLC-JHP201300732

PATIENT
  Age: 81 Year
  Sex: Female

DRUGS (1)
  1. DANTRIUM [Suspect]
     Indication: CEREBRAL VASOCONSTRICTION
     Dosage: 1.25 MG/KG, EVERY 6 HOURS; TOTAL=1820 MG
     Route: 042

REACTIONS (4)
  - Haematoma [Recovered/Resolved]
  - Haemoglobin decreased [Recovered/Resolved]
  - Haematocrit decreased [Recovered/Resolved]
  - Off label use [Recovered/Resolved]
